FAERS Safety Report 8828131 (Version 1)
Quarter: 2012Q4

REPORT INFORMATION
  Report Type: 
  Country: BR (occurrence: BR)
  Receive Date: 20121008
  Receipt Date: 20121008
  Transmission Date: 20130627
  Serious: Yes (Other)
  Sender: FDA-Public Use
  Company Number: PHHY2012BR084364

PATIENT
  Sex: Male

DRUGS (2)
  1. TEGRETOL [Suspect]
     Indication: CONVULSION
     Dosage: 100 ml, UNK
     Route: 048
     Dates: start: 2006, end: 200702
  2. TRAVATAN [Concomitant]
     Indication: INTRAOCULAR PRESSURE TEST
     Dosage: 0.4 mg/ml, UNK

REACTIONS (2)
  - Autism [Not Recovered/Not Resolved]
  - Mental retardation [Not Recovered/Not Resolved]
